FAERS Safety Report 7730054-6 (Version None)
Quarter: 2011Q3

REPORT INFORMATION
  Report Type: 
  Country: None (occurrence: None)
  Receive Date: 20110901
  Receipt Date: 20110901
  Transmission Date: 20111222
  Serious: No
  Sender: FDA-Public Use
  Company Number: None

PATIENT
  Sex: Female
  Weight: 47.1741 kg

DRUGS (2)
  1. REGLAN [Suspect]
     Indication: HYPERCHLORHYDRIA
     Dosage: 5 MG PRN: AS NEEDED
     Dates: start: 20000101
  2. REGLAN [Suspect]
     Indication: NAUSEA
     Dosage: 5 MG PRN: AS NEEDED
     Dates: start: 20000101

REACTIONS (2)
  - BRUXISM [None]
  - SWOLLEN TONGUE [None]
